FAERS Safety Report 23751600 (Version 1)
Quarter: 2024Q2

REPORT INFORMATION
  Report Type: Spontaneous
  Country: GB (occurrence: GB)
  Receive Date: 20240417
  Receipt Date: 20240417
  Transmission Date: 20240716
  Serious: Yes (Hospitalization)
  Sender: FDA-Public Use
  Company Number: None

PATIENT
  Age: 37 Year
  Sex: Female

DRUGS (3)
  1. GADOBUTROL [Suspect]
     Active Substance: GADOBUTROL
     Indication: Diagnostic procedure
     Dosage: 6.5ML
     Route: 042
     Dates: start: 20240317, end: 20240317
  2. GADOBUTROL [Suspect]
     Active Substance: GADOBUTROL
     Indication: Magnetic resonance imaging head
  3. GADOBUTROL [Suspect]
     Active Substance: GADOBUTROL
     Indication: Pituitary scan

REACTIONS (6)
  - Supraventricular tachycardia [Recovered/Resolved]
  - Sneezing [Recovered/Resolved]
  - Pharyngeal swelling [Recovered/Resolved]
  - Cough [Recovered/Resolved]
  - Eye irritation [Recovered/Resolved]
  - Chest pain [Recovered/Resolved]

NARRATIVE: CASE EVENT DATE: 20240317
